FAERS Safety Report 9206190 (Version 1)
Quarter: 2013Q2

REPORT INFORMATION
  Report Type: Spontaneous
  Country: LB (occurrence: None)
  Receive Date: 20130401
  Receipt Date: 20130401
  Transmission Date: 20140414
  Serious: Yes (Other)
  Sender: FDA-Public Use
  Company Number: 20130159

PATIENT
  Age: 10 Year
  Sex: Male

DRUGS (8)
  1. CYCLOSPORINE [Suspect]
     Indication: GRAFT VERSUS HOST DISEASE
     Dates: start: 200906
  2. CYCLOSPORIN [Suspect]
     Indication: GRAFT VERSUS HOST DISEASE
     Route: 048
  3. FLUCONAZOLE [Suspect]
     Route: 048
  4. METHOTREXATE [Concomitant]
  5. PREDNISOLONE [Concomitant]
  6. SULFAMETHOXAZOLE [Concomitant]
  7. VALACICLOVIR [Concomitant]
  8. PENICILLIN G [Concomitant]

REACTIONS (8)
  - Posterior reversible encephalopathy syndrome [None]
  - Hypertensive encephalopathy [None]
  - Toxicity to various agents [None]
  - Drug level increased [None]
  - Febrile neutropenia [None]
  - Diarrhoea [None]
  - Graft versus host disease in skin [None]
  - Potentiating drug interaction [None]
